FAERS Safety Report 4941348-1 (Version None)
Quarter: 2006Q1

REPORT INFORMATION
  Report Type: 
  Country: None (occurrence: None)
  Receive Date: 20060313
  Receipt Date: 20051122
  Transmission Date: 20060701
  Serious: Yes (Other)
  Sender: FDA-Public Use
  Company Number: DE-MERCK-0511DEU00145

PATIENT
  Age: 62 Year
  Sex: Female
  Weight: 68 kg

DRUGS (1)
  1. VIOXX [Suspect]
     Indication: ARTHRALGIA
     Route: 048
     Dates: start: 20030701, end: 20031101

REACTIONS (12)
  - ANXIETY [None]
  - BLOOD PRESSURE INCREASED [None]
  - CONSTIPATION [None]
  - DIZZINESS [None]
  - INSOMNIA [None]
  - LEUKOENCEPHALOPATHY [None]
  - MADAROSIS [None]
  - ORAL MUCOSAL BLISTERING [None]
  - PALPITATIONS [None]
  - RASH PRURITIC [None]
  - TACHYCARDIA [None]
  - THALAMIC INFARCTION [None]
